FAERS Safety Report 4803474-7 (Version None)
Quarter: 2005Q4

REPORT INFORMATION
  Report Type: 
  Country: None (occurrence: None)
  Receive Date: 20051019
  Receipt Date: 20050117
  Transmission Date: 20060501
  Serious: Yes (Other)
  Sender: FDA-Public Use
  Company Number: 2005UW00869

PATIENT
  Age: 62 Year
  Sex: Female
  Weight: 62.6 kg

DRUGS (3)
  1. ARIMIDEX [Suspect]
     Indication: BREAST CANCER
     Route: 048
  2. CALCIUM GLUCONATE [Suspect]
     Dosage: 1200 MG
  3. ACTONEL [Concomitant]
     Indication: OSTEOPOROSIS

REACTIONS (3)
  - BONE PAIN [None]
  - UTERINE INVERSION [None]
  - VAGINAL BURNING SENSATION [None]
